FAERS Safety Report 6248553-5 (Version None)
Quarter: 2009Q2

REPORT INFORMATION
  Report Type: 
  Country: None (occurrence: None)
  Receive Date: 20090629
  Receipt Date: 20090615
  Transmission Date: 20091009
  Serious: Yes (Hospitalization)
  Sender: FDA-Public Use
  Company Number: FR-JNJFOC-20090608798

PATIENT
  Sex: Female

DRUGS (16)
  1. IXPRIM [Suspect]
     Indication: DRUG USE FOR UNKNOWN INDICATION
     Route: 048
     Dates: start: 20090302, end: 20090407
  2. ALIMTA [Suspect]
     Indication: DRUG USE FOR UNKNOWN INDICATION
     Route: 042
     Dates: start: 20090301, end: 20090505
  3. AVASTIN [Suspect]
     Indication: DRUG USE FOR UNKNOWN INDICATION
     Route: 042
     Dates: start: 20090414, end: 20090505
  4. NEXIUM [Suspect]
     Route: 048
  5. NEXIUM [Suspect]
     Indication: DRUG USE FOR UNKNOWN INDICATION
     Route: 048
  6. PAROXETINE HCL [Suspect]
     Indication: DRUG USE FOR UNKNOWN INDICATION
     Route: 048
  7. TAHOR [Concomitant]
     Route: 065
  8. ALDACTAZINE [Concomitant]
     Route: 065
  9. ADALAT [Concomitant]
     Route: 065
  10. XYZAL [Concomitant]
     Route: 065
  11. CIRKAN [Concomitant]
     Route: 065
  12. BROMAZEPAM [Concomitant]
     Route: 065
  13. FRAXODI [Concomitant]
     Route: 065
  14. DIFFU K [Concomitant]
     Route: 065
  15. CALCIVIT D [Concomitant]
     Route: 065
  16. MOPRAL [Concomitant]
     Route: 065

REACTIONS (4)
  - CHOLESTASIS [None]
  - CYTOLYTIC HEPATITIS [None]
  - GAMMA-GLUTAMYLTRANSFERASE INCREASED [None]
  - TRANSAMINASES INCREASED [None]
